FAERS Safety Report 23702817 (Version 1)
Quarter: 2024Q2

REPORT INFORMATION
  Report Type: Spontaneous
  Country: US (occurrence: None)
  Receive Date: 20240403
  Receipt Date: 20240403
  Transmission Date: 20240715
  Serious: Yes (Hospitalization)
  Sender: FDA-Public Use
  Company Number: None

PATIENT
  Age: 65 Year
  Sex: Male
  Weight: 79.3 kg

DRUGS (4)
  1. CARBOPLATIN [Suspect]
     Active Substance: CARBOPLATIN
     Indication: Squamous cell carcinoma of head and neck
  2. CARBOPLATIN [Suspect]
     Active Substance: CARBOPLATIN
     Indication: Tracheostomy
  3. CETUXIMAB [Suspect]
     Active Substance: CETUXIMAB
  4. DOCETAXEL [Suspect]
     Active Substance: DOCETAXEL\DOCETAXEL ANHYDROUS

REACTIONS (3)
  - Diarrhoea [None]
  - Laryngeal haemorrhage [None]
  - Fatigue [None]

NARRATIVE: CASE EVENT DATE: 20240308
